FAERS Safety Report 25698843 (Version 1)
Quarter: 2025Q3

REPORT INFORMATION
  Report Type: Spontaneous
  Country: US (occurrence: None)
  Receive Date: 20250818
  Receipt Date: 20250818
  Transmission Date: 20251020
  Serious: Yes (Death)
  Sender: FDA-CTU
  Company Number: None

PATIENT
  Age: 70 Year
  Sex: Female

DRUGS (5)
  1. VANCOMYCIN [Suspect]
     Active Substance: VANCOMYCIN
  2. PIPERACILLIN AND TAZOBACTAM [Suspect]
     Active Substance: PIPERACILLIN SODIUM\TAZOBACTAM SODIUM
  3. VANCOMYCIN [Concomitant]
     Active Substance: VANCOMYCIN
  4. PIPERACILLIN AND TAZOBACTAM [Concomitant]
     Active Substance: PIPERACILLIN SODIUM\TAZOBACTAM SODIUM
  5. NOREPINEPHRINE [Concomitant]
     Active Substance: NOREPINEPHRINE

REACTIONS (8)
  - Gallbladder abscess [None]
  - Pneumonia aspiration [None]
  - Nephropathy toxic [None]
  - Renal tubular necrosis [None]
  - Multiple organ dysfunction syndrome [None]
  - Renal infarct [None]
  - Splenic infarction [None]
  - General physical health deterioration [None]

NARRATIVE: CASE EVENT DATE: 20240717
